FAERS Safety Report 5453659-4 (Version None)
Quarter: 2007Q3

REPORT INFORMATION
  Report Type: 
  Country: None (occurrence: None)
  Receive Date: 20070917
  Receipt Date: 20070910
  Transmission Date: 20080115
  Serious: Yes (Other)
  Sender: FDA-Public Use
  Company Number: PHBS2007ES14943

PATIENT
  Age: 70 Year
  Sex: Male

DRUGS (6)
  1. ZOLEDRONIC ACID [Suspect]
     Indication: METASTASES TO BONE
  2. DOCETAXEL [Concomitant]
  3. STRAMUSTINE [Concomitant]
  4. VINORELBINE [Concomitant]
  5. PACLITAXEL [Concomitant]
  6. ANTINEOPLASTIC AGENTS [Concomitant]

REACTIONS (7)
  - BONE DISORDER [None]
  - GINGIVAL SWELLING [None]
  - LOOSE TOOTH [None]
  - OSTEONECROSIS [None]
  - PAIN IN JAW [None]
  - TOOTH EXTRACTION [None]
  - TOOTH LOSS [None]
